FAERS Safety Report 13692770 (Version 2)
Quarter: 2017Q3

REPORT INFORMATION
  Report Type: Report from Study
  Country: None (occurrence: US)
  Receive Date: 20170627
  Receipt Date: 20170918
  Transmission Date: 20171127
  Serious: Yes (Other)
  Sender: FDA-Public Use
  Company Number: US-ABBVIE-17K-163-2017630-00

PATIENT
  Sex: Female
  Weight: 99.88 kg

DRUGS (1)
  1. HUMIRA [Suspect]
     Active Substance: ADALIMUMAB
     Indication: RHEUMATOID ARTHRITIS
     Route: 058
     Dates: start: 2017, end: 201706

REACTIONS (8)
  - Pain [Recovering/Resolving]
  - Hypoaesthesia [Recovering/Resolving]
  - Nerve compression [Recovered/Resolved]
  - Extremity contracture [Recovering/Resolving]
  - Drug ineffective [Unknown]
  - Nerve injury [Not Recovered/Not Resolved]
  - Synovial cyst [Recovered/Resolved]
  - Paraesthesia [Recovering/Resolving]

NARRATIVE: CASE EVENT DATE: 2017
